FAERS Safety Report 21625924 (Version 3)
Quarter: 2022Q4

REPORT INFORMATION
  Report Type: Report from Study
  Country: US (occurrence: None)
  Receive Date: 20221122
  Receipt Date: 20221214
  Transmission Date: 20230112
  Serious: Yes (Death, Hospitalization)
  Sender: FDA-Public Use
  Company Number: US-ROCHE-3221177

PATIENT
  Age: 37 Year
  Sex: Male
  Weight: 51.25 kg

DRUGS (13)
  1. TJ-004309 [Suspect]
     Active Substance: TJ-004309
     Indication: Oesophageal adenocarcinoma
     Dosage: 50 MG PER MILILITER
     Route: 042
     Dates: start: 20221010, end: 20221104
  2. ATEZOLIZUMAB [Suspect]
     Active Substance: ATEZOLIZUMAB
     Indication: Oesophageal adenocarcinoma
     Route: 041
     Dates: start: 20221010, end: 20221104
  3. ONDANSETRON [Concomitant]
     Active Substance: ONDANSETRON
     Dates: start: 20220927
  4. POLYETHYLENE GLYCOL [Concomitant]
     Active Substance: POLYETHYLENE GLYCOL
     Dates: start: 20220927
  5. SCOPOLAMINE [Concomitant]
     Active Substance: SCOPOLAMINE
     Dates: start: 20220927
  6. OMEPRAZOLE [Concomitant]
     Active Substance: OMEPRAZOLE
     Dates: start: 20220927
  7. FAMOTIDINE [Concomitant]
     Active Substance: FAMOTIDINE
     Dates: start: 20220927
  8. ENOXAPARIN [Concomitant]
     Active Substance: ENOXAPARIN
     Dates: start: 20221010
  9. ATIVAN [Concomitant]
     Active Substance: LORAZEPAM
     Dates: start: 20221101
  10. ACETAMINOPHEN\HYDROCODONE [Concomitant]
     Active Substance: ACETAMINOPHEN\HYDROCODONE
     Dates: start: 20221102
  11. FENTANYL [Concomitant]
     Active Substance: FENTANYL
     Dates: start: 20221102
  12. METOCLOPRAMIDE [Concomitant]
     Active Substance: METOCLOPRAMIDE
     Dates: start: 20221103
  13. MIRTAZAPINE [Concomitant]
     Active Substance: MIRTAZAPINE
     Dates: start: 20221103

REACTIONS (2)
  - Fall [Unknown]
  - Disease progression [Fatal]

NARRATIVE: CASE EVENT DATE: 20221104
